FAERS Safety Report 17739932 (Version 1)
Quarter: 2020Q2

REPORT INFORMATION
  Report Type: Spontaneous
  Country: US (occurrence: US)
  Receive Date: 20200502
  Receipt Date: 20200502
  Transmission Date: 20200714
  Serious: No
  Sender: FDA-Public Use
  Company Number: None

PATIENT
  Age: 34 Year
  Sex: Male

DRUGS (1)
  1. LIALDA [Suspect]
     Active Substance: MESALAMINE
     Indication: INFLAMMATORY BOWEL DISEASE
     Dates: start: 20181115, end: 20200131

REACTIONS (4)
  - Condition aggravated [None]
  - Pain [None]
  - Drug ineffective [None]
  - Haematochezia [None]

NARRATIVE: CASE EVENT DATE: 20190117
